FAERS Safety Report 14941804 (Version 1)
Quarter: 2018Q2

REPORT INFORMATION
  Report Type: Report from Study
  Country: IN (occurrence: IN)
  Receive Date: 20180527
  Receipt Date: 20180527
  Transmission Date: 20180711
  Serious: Yes (Hospitalization, Other)
  Sender: FDA-Public Use
  Company Number: PHHY2018IN004443

PATIENT
  Age: 71 Year
  Sex: Female

DRUGS (3)
  1. SHELCAL [Concomitant]
     Dosage: 500 MG, QD
     Route: 048
     Dates: start: 20170909
  2. SHELCAL [Concomitant]
     Indication: PRODUCT USED FOR UNKNOWN INDICATION
     Dosage: UNK
     Dates: start: 20170704
  3. LETROZOLE. [Suspect]
     Active Substance: LETROZOLE
     Indication: BREAST CANCER METASTATIC
     Dosage: 2.5 MG, UNK
     Route: 048
     Dates: start: 20170708

REACTIONS (25)
  - Dyspnoea [Unknown]
  - Haematocrit decreased [Unknown]
  - Asthenia [Unknown]
  - Bilirubin conjugated abnormal [Unknown]
  - Eosinophil count decreased [Unknown]
  - Mean cell haemoglobin increased [Unknown]
  - Pyrexia [Unknown]
  - Mean cell haemoglobin concentration increased [Unknown]
  - Red blood cell count decreased [Unknown]
  - Thrombocytopenia [Unknown]
  - Alanine aminotransferase decreased [Unknown]
  - Albumin globulin ratio decreased [Unknown]
  - Glomerular filtration rate abnormal [Unknown]
  - Lymphocyte count increased [Unknown]
  - Metamyelocyte count increased [Unknown]
  - Red cell distribution width increased [Unknown]
  - Globulin abnormal [Unknown]
  - Cough [Unknown]
  - Febrile neutropenia [Recovered/Resolved]
  - Haemoglobin decreased [Unknown]
  - Mean cell volume increased [Unknown]
  - Chills [Unknown]
  - Leukopenia [Unknown]
  - Blood bilirubin abnormal [Unknown]
  - Blood bilirubin unconjugated increased [Unknown]

NARRATIVE: CASE EVENT DATE: 20170917
